FAERS Safety Report 9966383 (Version 1)
Quarter: 2014Q1

REPORT INFORMATION
  Report Type: Report from Study
  Country: US (occurrence: US)
  Receive Date: 20140305
  Receipt Date: 20140305
  Transmission Date: 20141002
  Serious: No
  Sender: FDA-Public Use
  Company Number: US-ABBVIE-13P-163-1122546-00

PATIENT
  Sex: Female

DRUGS (8)
  1. HUMIRA [Suspect]
     Indication: PSORIASIS
  2. HUMIRA [Suspect]
  3. SIMVASTATIN [Concomitant]
     Indication: BLOOD CHOLESTEROL INCREASED
     Dosage: 20 MG DAILY
  4. SYNTHROID [Concomitant]
     Indication: HYPOTHYROIDISM
     Dosage: 175 MCG DAILY
  5. LOSARTAN [Concomitant]
     Indication: HYPERTENSION
     Dosage: 50 MG DAILY
  6. BYSTOLIC [Concomitant]
     Indication: HYPERTENSION
     Dosage: 20 MG DAILY
  7. LANSOPRAZOLE [Concomitant]
     Indication: GASTROOESOPHAGEAL REFLUX DISEASE
     Dosage: 30 MG DAILY
  8. SERTRALINE [Concomitant]
     Indication: NERVOUSNESS
     Dosage: 50 MG DAILY

REACTIONS (1)
  - Psoriasis [Unknown]
